FAERS Safety Report 6327116-7 (Version None)
Quarter: 2009Q3

REPORT INFORMATION
  Report Type: 
  Country: None (occurrence: None)
  Receive Date: 20090825
  Receipt Date: 20090820
  Transmission Date: 20100115
  Serious: Yes (Other)
  Sender: FDA-Public Use
  Company Number: A0803599A

PATIENT
  Age: 77 Year
  Sex: Male

DRUGS (3)
  1. SERETIDE [Suspect]
     Indication: BRONCHOSPASM
     Route: 055
  2. ALPRAZOLAM [Concomitant]
  3. BETAHISTINE [Concomitant]

REACTIONS (3)
  - ACTIVITIES OF DAILY LIVING IMPAIRED [None]
  - DYSGRAPHIA [None]
  - TREMOR [None]
